FAERS Safety Report 7134308-6 (Version None)
Quarter: 2010Q4

REPORT INFORMATION
  Report Type: 
  Country: None (occurrence: None)
  Receive Date: 20101203
  Receipt Date: 20101123
  Transmission Date: 20110411
  Serious: Yes (Hospitalization)
  Sender: FDA-Public Use
  Company Number: US-NOVOPROD-318928

PATIENT
  Sex: Female

DRUGS (1)
  1. LEVEMIR [Suspect]
     Indication: DIABETES MELLITUS
     Dosage: 25 IU, HS
     Route: 058

REACTIONS (4)
  - BLOOD SODIUM DECREASED [None]
  - DECREASED APPETITE [None]
  - HEPATIC CIRRHOSIS [None]
  - LOCAL SWELLING [None]
